FAERS Safety Report 18451713 (Version 1)
Quarter: 2020Q4

REPORT INFORMATION
  Report Type: Report from Study
  Country: CN (occurrence: CN)
  Receive Date: 20201102
  Receipt Date: 20201102
  Transmission Date: 20210114
  Serious: Yes (Other)
  Sender: FDA-Public Use
  Company Number: CN-BRISTOL-MYERS SQUIBB COMPANY-BMS-2020-091001

PATIENT
  Age: 65 Year
  Sex: Female

DRUGS (1)
  1. NIVOLUMAB [Suspect]
     Active Substance: NIVOLUMAB
     Indication: NON-SMALL CELL LUNG CANCER
     Dosage: 140 MILLIGRAM, Q4WK
     Route: 042
     Dates: start: 20200911

REACTIONS (4)
  - Constipation [Unknown]
  - Vomiting [Unknown]
  - Haematemesis [Unknown]
  - Off label use [Unknown]

NARRATIVE: CASE EVENT DATE: 202009
